FAERS Safety Report 8299641-3 (Version None)
Quarter: 2012Q2

REPORT INFORMATION
  Report Type: 
  Country: None (occurrence: None)
  Receive Date: 20120419
  Receipt Date: 20120411
  Transmission Date: 20120825
  Serious: Yes (Other)
  Sender: FDA-Public Use
  Company Number: DE-GLAXOSMITHKLINE-D0074768A

PATIENT
  Sex: Female
  Weight: 90 kg

DRUGS (8)
  1. LEVOTHYROXINE SODIUM [Concomitant]
     Route: 048
  2. FLUTICASONE PROPIONATE/SALMETEROL [Suspect]
     Indication: ASTHMA
     Dosage: 300MCG TWICE PER DAY
     Route: 055
     Dates: start: 20020101, end: 20120201
  3. OLMESARTAN MEDOXOMIL [Concomitant]
     Dosage: 10MG PER DAY
     Route: 065
  4. EFEROX [Concomitant]
     Dosage: 50MG PER DAY
     Route: 065
  5. PANTOPRAZOLE [Concomitant]
     Dosage: 10MG PER DAY
     Route: 065
  6. BERODUAL [Concomitant]
     Route: 065
  7. BECLOMET NASAL [Concomitant]
     Route: 065
  8. TORSEMIDE [Concomitant]
     Dosage: 20MG PER DAY
     Route: 065

REACTIONS (9)
  - HYPERSENSITIVITY [None]
  - ERYTHEMA [None]
  - CARDIAC DISORDER [None]
  - PRURITUS [None]
  - DYSPHAGIA [None]
  - VISUAL IMPAIRMENT [None]
  - ALLERGIC OEDEMA [None]
  - TACHYCARDIA [None]
  - PANIC ATTACK [None]
